FAERS Safety Report 5207076-2 (Version None)
Quarter: 2007Q1

REPORT INFORMATION
  Report Type: 
  Country: None (occurrence: None)
  Receive Date: 20070112
  Receipt Date: 20070102
  Transmission Date: 20070707
  Serious: Yes (Other)
  Sender: FDA-Public Use
  Company Number: PHEH2006US12013

PATIENT
  Age: 63 Year
  Sex: Male
  Weight: 91.609 kg

DRUGS (8)
  1. ASPIRIN [Concomitant]
     Dosage: 81 MG, QD
     Route: 048
  2. ZOLOFT [Concomitant]
     Dosage: 50 MG, QD
     Route: 048
  3. OXYCONTIN [Concomitant]
     Dosage: 60 MG, BID
     Route: 048
  4. ZOMETA [Concomitant]
     Dosage: 4 MG, QMO
  5. EXJADE [Suspect]
     Indication: IRON OVERLOAD
     Dosage: 2000 MG, QD
     Route: 048
     Dates: start: 20060928
  6. VASOTEC [Concomitant]
     Dosage: 10 MG, QD
     Route: 048
  7. TRICOR [Concomitant]
     Dosage: 145 MG, QD
     Route: 048
  8. MULTI-VITAMINS [Concomitant]

REACTIONS (10)
  - CHEST X-RAY ABNORMAL [None]
  - FATIGUE [None]
  - LIGHT CHAIN ANALYSIS INCREASED [None]
  - LUNG INFILTRATION [None]
  - PYREXIA [None]
  - REFRACTION DISORDER [None]
  - RESPIRATORY TRACT INFECTION [None]
  - SERUM FERRITIN INCREASED [None]
  - SPUTUM DISCOLOURED [None]
  - VISION BLURRED [None]
